FAERS Safety Report 5191746-9 (Version None)
Quarter: 2006Q4

REPORT INFORMATION
  Report Type: 
  Country: None (occurrence: None)
  Receive Date: 20061219
  Receipt Date: 20061207
  Transmission Date: 20070319
  Serious: Yes (Hospitalization)
  Sender: FDA-Public Use
  Company Number: B0450553A

PATIENT
  Age: 47 Year
  Sex: Female

DRUGS (4)
  1. AMOXIL [Suspect]
     Indication: DRUG USE FOR UNKNOWN INDICATION
  2. PHENOXYMETHYL PENICILLIN [Suspect]
     Indication: DRUG USE FOR UNKNOWN INDICATION
  3. ACEBUTOLOL [Suspect]
     Indication: HYPERTENSION
     Dosage: 400 MG / PER DAY
  4. EPINEPHRINE [Suspect]
     Indication: ANAPHYLACTIC REACTION

REACTIONS (5)
  - ACCIDENTAL EXPOSURE [None]
  - ANAPHYLACTIC SHOCK [None]
  - PARADOXICAL DRUG REACTION [None]
  - SYNCOPE [None]
  - WRONG DRUG ADMINISTERED [None]
